FAERS Safety Report 12498145 (Version 1)
Quarter: 2016Q2

REPORT INFORMATION
  Report Type: Spontaneous
  Country: US (occurrence: US)
  Receive Date: 20160626
  Receipt Date: 20160626
  Transmission Date: 20160815
  Serious: No
  Sender: FDA-Public Use
  Company Number: US-TEVA-670296USA

PATIENT
  Age: 70 Year
  Sex: Male

DRUGS (10)
  1. COPAXONE [Suspect]
     Active Substance: GLATIRAMER ACETATE
     Indication: MULTIPLE SCLEROSIS
     Route: 058
     Dates: start: 20160229
  2. NIACIN. [Concomitant]
     Active Substance: NIACIN
  3. DULOXETINE. [Concomitant]
     Active Substance: DULOXETINE
  4. CLONAZEPAM. [Concomitant]
     Active Substance: CLONAZEPAM
  5. MULTIVITAMIN [Concomitant]
     Active Substance: VITAMINS
  6. METHYLPREDNISOLONE. [Concomitant]
     Active Substance: METHYLPREDNISOLONE
  7. GABAPENTIN. [Concomitant]
     Active Substance: GABAPENTIN
  8. VITAMIN D3 [Concomitant]
     Active Substance: CHOLECALCIFEROL
  9. METHYLPHENIDATE. [Concomitant]
     Active Substance: METHYLPHENIDATE
  10. FISH OIL [Concomitant]
     Active Substance: FISH OIL

REACTIONS (1)
  - Fall [Unknown]

NARRATIVE: CASE EVENT DATE: 201605
